FAERS Safety Report 7377795-0 (Version None)
Quarter: 2011Q1

REPORT INFORMATION
  Report Type: 
  Country: None (occurrence: None)
  Receive Date: 20110328
  Receipt Date: 20110321
  Transmission Date: 20110831
  Serious: Yes (Other)
  Sender: FDA-Public Use
  Company Number: US-ROCHE-746524

PATIENT
  Sex: Male
  Weight: 79.4 kg

DRUGS (1)
  1. ACCUTANE [Suspect]
     Indication: ACNE
     Route: 065
     Dates: start: 19821109, end: 19830501

REACTIONS (8)
  - BLOOD TRIGLYCERIDES INCREASED [None]
  - DRY EYE [None]
  - ANAL ABSCESS [None]
  - ANAL FISTULA [None]
  - DEPRESSION [None]
  - BACK PAIN [None]
  - CROHN'S DISEASE [None]
  - INTESTINAL OBSTRUCTION [None]
